FAERS Safety Report 5463795-4 (Version None)
Quarter: 2007Q3

REPORT INFORMATION
  Report Type: 
  Country: None (occurrence: None)
  Receive Date: 20070919
  Receipt Date: 20070905
  Transmission Date: 20080115
  Serious: Yes (Hospitalization)
  Sender: FDA-Public Use
  Company Number: TPA2007A01861

PATIENT
  Age: 60 Year
  Sex: Female

DRUGS (4)
  1. ACTOS [Suspect]
     Indication: TYPE 2 DIABETES MELLITUS
     Dosage: 15 MG, 1 IN 1 D, PER ORAL
     Route: 048
  2. ACTOPLUS MET [Suspect]
     Indication: TYPE 2 DIABETES MELLITUS
     Dosage: 15/500 MG, 1 IN 1 D, PER ORAL
     Route: 048
  3. CRESTOR [Concomitant]
  4. LISINOPRIL [Concomitant]

REACTIONS (2)
  - EPISTAXIS [None]
  - PANCYTOPENIA [None]
